FAERS Safety Report 4507773-8 (Version None)
Quarter: 2004Q4

REPORT INFORMATION
  Report Type: 
  Country: None (occurrence: None)
  Receive Date: 20041123
  Receipt Date: 20041117
  Transmission Date: 20050328
  Serious: Yes (Hospitalization)
  Sender: FDA-Public Use
  Company Number: US-JNJFOC-20041104543

PATIENT
  Sex: Male

DRUGS (3)
  1. DURAGESIC [Suspect]
     Route: 062
  2. DURAGESIC [Suspect]
     Route: 062
  3. FLONASE [Concomitant]
     Route: 061

REACTIONS (5)
  - APPLICATION SITE REACTION [None]
  - DRUG WITHDRAWAL SYNDROME [None]
  - MUSCLE SPASMS [None]
  - PSYCHOTIC DISORDER [None]
  - THERAPEUTIC RESPONSE DECREASED [None]
